FAERS Safety Report 5120201-7 (Version None)
Quarter: 2006Q3

REPORT INFORMATION
  Report Type: 
  Country: None (occurrence: None)
  Receive Date: 20060928
  Receipt Date: 20060919
  Transmission Date: 20061208
  Serious: Yes (Other)
  Sender: FDA-Public Use
  Company Number: 2006110731

PATIENT
  Age: 64 Year
  Sex: Male

DRUGS (3)
  1. XALATAN [Suspect]
     Indication: GLAUCOMA
     Dosage: INTRAOCULAR
     Dates: start: 20060405, end: 20060410
  2. TRUSOPT [Concomitant]
  3. TIMOLOL MALEATE [Concomitant]

REACTIONS (1)
  - CHOROIDAL EFFUSION [None]
